FAERS Safety Report 10234187 (Version 1)
Quarter: 2014Q1

REPORT INFORMATION
  Report Type: Spontaneous
  Country: US (occurrence: None)
  Receive Date: 20140306
  Receipt Date: 20140306
  Transmission Date: 20141002
  Serious: Yes (Hospitalization)
  Sender: FDA-Public Use
  Company Number: 163-21880-13052983

PATIENT
  Age: 63 Year
  Sex: Male

DRUGS (11)
  1. REVLIMID (LENALIDOMIDE) (25 MILLIGRAM, CAPSULES) [Suspect]
     Indication: PLASMA CELL MYELOMA
     Route: 048
     Dates: start: 20121001
  2. VIAGRA (SILDENAFIL CITRATE) (TABLETS) [Concomitant]
  3. LOTREL (LOTREL) (UNKNOWN) [Concomitant]
  4. OXYCODONE HCL (OXYCODONE HYDROCHLORIDE) (UNKNOWN) [Concomitant]
  5. STOOL SOFTENER (DOCUSATE SODIUM) (UNKNOWN) [Concomitant]
  6. ADULT LOW DOSE ASPIRIN (ACETYLSALICYLIC ACID) (UNKNOWN) [Concomitant]
  7. MUCINEX DM (TUSSIN DM) (UNKNOWN) [Concomitant]
  8. AMBIEN (ZOLPIDEM TARTRATE) (UNKNOWN) [Concomitant]
  9. DEXAMETHASONE (DEXAMETHASONE) )UNKNOWN) [Concomitant]
  10. EFFIENT (PRASUGREL HYDROCHLORIDE) (TABLETS) [Concomitant]
  11. CRESTOR (ROSUVASTATIN) (TABLETS) [Concomitant]

REACTIONS (4)
  - Dizziness [None]
  - Syncope [None]
  - Dyspnoea [None]
  - Fatigue [None]
